FAERS Safety Report 7419246-3 (Version None)
Quarter: 2011Q2

REPORT INFORMATION
  Report Type: 
  Country: None (occurrence: None)
  Receive Date: 20110415
  Receipt Date: 20110406
  Transmission Date: 20111010
  Serious: Yes (Hospitalization)
  Sender: FDA-Public Use
  Company Number: BR-ASTRAZENECA-2011SE19905

PATIENT
  Age: 53 Year
  Sex: Female
  Weight: 75 kg

DRUGS (17)
  1. SIMVASTATIN [Suspect]
     Route: 048
     Dates: start: 20090401
  2. FLUOXETINE [Concomitant]
     Indication: DEPRESSION
     Route: 048
  3. SERTRALINE [Concomitant]
     Indication: DEPRESSION
     Dosage: AS REQUIRED
     Route: 048
  4. SIMVASTATIN [Suspect]
     Route: 048
     Dates: start: 20110201
  5. ANAFRANIL [Concomitant]
     Indication: PANIC DISORDER
     Route: 048
  6. LEXOTAN [Concomitant]
     Indication: PANIC DISORDER
     Route: 048
  7. ISODRIL [Concomitant]
     Indication: ANGINA PECTORIS
     Route: 048
     Dates: end: 20090101
  8. CRESTOR [Suspect]
     Indication: HYPERCHOLESTEROLAEMIA
     Route: 048
     Dates: start: 20090101, end: 20090401
  9. SIMVASTATIN [Suspect]
     Indication: HYPERCHOLESTEROLAEMIA
     Route: 048
     Dates: end: 20090101
  10. DIOVAN [Concomitant]
     Route: 048
  11. ANAFRANIL [Concomitant]
     Indication: DEPRESSION
     Route: 048
  12. CRESTOR [Suspect]
     Route: 048
     Dates: end: 20110101
  13. DILTIAZEM [Concomitant]
     Route: 048
  14. VASTAREL [Concomitant]
     Route: 048
  15. LEXOTAN [Concomitant]
     Indication: DEPRESSION
     Route: 048
  16. RIVOTRIL [Concomitant]
     Indication: DEPRESSION
     Route: 048
  17. RIVOTRIL [Concomitant]
     Indication: PANIC DISORDER
     Route: 048

REACTIONS (6)
  - MYOCARDIAL INFARCTION [None]
  - DIZZINESS [None]
  - MEMORY IMPAIRMENT [None]
  - DYSPEPSIA [None]
  - ABDOMINAL PAIN UPPER [None]
  - DRUG DOSE OMISSION [None]
